FAERS Safety Report 8163752 (Version 3)
Quarter: 2012Q4

REPORT INFORMATION
  Report Type: 
  Country: US (occurrence: US)
  Receive Date: 20110930
  Receipt Date: 20120917
  Transmission Date: 20130627
  Serious: No
  Sender: FDA-Public Use
  Company Number: US-ASTRAZENECA-2011SE09090

PATIENT
  Age: 62 Year
  Sex: Female

DRUGS (1)
  1. ARIMIDEX [Suspect]
     Route: 048

REACTIONS (8)
  - Tendonitis [Recovered/Resolved]
  - Tendon disorder [Unknown]
  - Weight increased [Unknown]
  - Arthropathy [Unknown]
  - Gait disturbance [Unknown]
  - Drug intolerance [Unknown]
  - Trigger finger [Unknown]
  - Arthralgia [Recovering/Resolving]
